FAERS Safety Report 7982783-7 (Version None)
Quarter: 2011Q4

REPORT INFORMATION
  Report Type: 
  Country: None (occurrence: None)
  Receive Date: 20111215
  Receipt Date: 20111208
  Transmission Date: 20120403
  Serious: Yes (Hospitalization)
  Sender: FDA-Public Use
  Company Number: JP-B.I. PHARMACEUTICALS,INC./RIDGEFIELD-2011-EU-00890GD

PATIENT
  Age: 74 Year
  Sex: Male

DRUGS (8)
  1. MAGNESIUM OXIDE [Suspect]
     Dosage: 2 G
  2. ACTOS [Concomitant]
     Dosage: 30 MG
     Route: 048
  3. LASIX [Concomitant]
     Dosage: 40 MG
     Route: 048
  4. ALFAROL [Suspect]
     Dosage: 0.5 MG
     Route: 048
  5. ALOSENN GRANULES [Concomitant]
     Dosage: 1 G
  6. AMARYL [Concomitant]
     Dosage: 2 MG
     Route: 048
  7. MAGNESIUM OXIDE [Suspect]
     Indication: CONSTIPATION
     Dosage: 3 G
  8. MICARDIS [Suspect]
     Dosage: 40 MG
     Route: 048

REACTIONS (6)
  - HYPERMAGNESAEMIA [None]
  - TOXICITY TO VARIOUS AGENTS [None]
  - BLOOD GLUCOSE INCREASED [None]
  - HYPOTENSION [None]
  - BLOOD UREA INCREASED [None]
  - BLOOD CREATININE INCREASED [None]
